FAERS Safety Report 17506639 (Version 3)
Quarter: 2022Q1

REPORT INFORMATION
  Report Type: Spontaneous
  Country: US (occurrence: None)
  Receive Date: 20200305
  Receipt Date: 20220314
  Transmission Date: 20220423
  Serious: No
  Sender: FDA-Public Use
  Company Number: US-ROCHE-2454680

PATIENT
  Sex: Female
  Weight: 89.438 kg

DRUGS (3)
  1. XOLAIR [Suspect]
     Active Substance: OMALIZUMAB
     Indication: Chronic spontaneous urticaria
     Route: 058
     Dates: start: 2016
  2. LEVALBUTEROL [Concomitant]
     Active Substance: LEVALBUTEROL
     Indication: Asthma
     Dates: start: 2016
  3. ZYRTEC (UNITED STATES) [Concomitant]
     Indication: Urticaria

REACTIONS (2)
  - Pregnancy [Unknown]
  - No adverse event [Unknown]
